FAERS Safety Report 7379816-8 (Version None)
Quarter: 2011Q1

REPORT INFORMATION
  Report Type: 
  Country: None (occurrence: None)
  Receive Date: 20110329
  Receipt Date: 20110323
  Transmission Date: 20110831
  Serious: No
  Sender: FDA-Public Use
  Company Number: US-PFIZER INC-2011065677

PATIENT

DRUGS (2)
  1. VENLAFAXINE HCL [Suspect]
     Dosage: UNK
     Dates: start: 20110101
  2. EFFEXOR XR [Suspect]
     Dosage: UNK

REACTIONS (1)
  - DRUG INEFFECTIVE [None]
